FAERS Safety Report 8029413-6 (Version None)
Quarter: 2012Q1

REPORT INFORMATION
  Report Type: 
  Country: None (occurrence: None)
  Receive Date: 20120106
  Receipt Date: 20120102
  Transmission Date: 20120608
  Serious: Yes (Life-Threatening, Hospitalization)
  Sender: FDA-Public Use
  Company Number: FR-ASTRAZENECA-2012SE00276

PATIENT
  Age: 76 Year
  Sex: Female

DRUGS (14)
  1. GLUCOPHAGE [Concomitant]
  2. ATACAND [Suspect]
     Route: 048
     Dates: end: 20110211
  3. SULFARLEM [Concomitant]
  4. OMEPRAZOLE [Concomitant]
  5. FORADIL [Concomitant]
     Dosage: 12 MICROGRAM/DOSE
     Route: 055
  6. LEVOTHYROXINE SODIUM [Concomitant]
  7. ISOPTIN [Concomitant]
  8. VOLTAREN [Interacting]
     Indication: OSTEOARTHRITIS
     Route: 003
     Dates: end: 20110211
  9. PREVISCAN [Concomitant]
  10. LASIX [Interacting]
     Route: 048
     Dates: end: 20110211
  11. FERROUS SULFATE TAB [Concomitant]
  12. IMOVANE [Concomitant]
  13. FLUTICASONE PROPIONATE [Concomitant]
  14. FENOFIBRATE [Concomitant]

REACTIONS (2)
  - RENAL FAILURE ACUTE [None]
  - DRUG INTERACTION [None]
